FAERS Safety Report 12917802 (Version 1)
Quarter: 2016Q4

REPORT INFORMATION
  Report Type: Spontaneous
  Country: US (occurrence: US)
  Receive Date: 20161107
  Receipt Date: 20161107
  Transmission Date: 20170207
  Serious: No
  Sender: FDA-Public Use
  Company Number: US-PFIZER INC-2016514849

PATIENT
  Age: 52 Year
  Sex: Female
  Weight: 58.96 kg

DRUGS (2)
  1. EFFEXOR XR [Suspect]
     Active Substance: VENLAFAXINE HYDROCHLORIDE
     Indication: DEPRESSION
     Dosage: 150 MG, 1X/DAY
     Route: 048
  2. EFFEXOR XR [Suspect]
     Active Substance: VENLAFAXINE HYDROCHLORIDE
     Indication: ANXIETY

REACTIONS (4)
  - Withdrawal syndrome [Not Recovered/Not Resolved]
  - Confusional state [Unknown]
  - Dizziness [Unknown]
  - Malaise [Unknown]

NARRATIVE: CASE EVENT DATE: 20161101
